FAERS Safety Report 25988304 (Version 1)
Quarter: 2025Q4

REPORT INFORMATION
  Report Type: Spontaneous
  Country: CN (occurrence: CN)
  Receive Date: 20251103
  Receipt Date: 20251103
  Transmission Date: 20260118
  Serious: Yes (Other)
  Sender: AMGEN
  Company Number: CN-AMGEN-CHNSP2025215816

PATIENT
  Age: 57 Year
  Sex: Male

DRUGS (3)
  1. KYPROLIS [Suspect]
     Active Substance: CARFILZOMIB
     Indication: Plasma cell myeloma
     Dosage: UNK, FOR 2 COURSES
     Route: 065
     Dates: start: 20241204
  2. POMALIDOMIDE [Concomitant]
     Active Substance: POMALIDOMIDE
     Indication: Plasma cell myeloma
     Dosage: UNK, FOR 2 COURSES
     Dates: start: 20241204
  3. DEXAMETHASONE [Concomitant]
     Active Substance: DEXAMETHASONE
     Indication: Plasma cell myeloma
     Dosage: UNK, FOR 2 COURSES
     Dates: start: 20241204

REACTIONS (4)
  - Liver injury [Unknown]
  - Pneumonia [Unknown]
  - Infection [Unknown]
  - Anaemia [Unknown]

NARRATIVE: CASE EVENT DATE: 20250125
